FAERS Safety Report 15517012 (Version 4)
Quarter: 2021Q3

REPORT INFORMATION
  Report Type: Report from Study
  Country: JP (occurrence: JP)
  Receive Date: 20181017
  Receipt Date: 20210907
  Transmission Date: 20211014
  Serious: Yes (Hospitalization, Other)
  Sender: FDA-Public Use
  Company Number: JP-GLAXOSMITHKLINE-JP2014055687

PATIENT
  Age: 51 Year
  Sex: Female

DRUGS (7)
  1. ZEFIX [Suspect]
     Active Substance: LAMIVUDINE
     Dosage: 100 MG, QD
     Dates: start: 201309, end: 201804
  2. ENTECAVIR. [Suspect]
     Active Substance: ENTECAVIR
     Indication: CHRONIC HEPATITIS B
     Dosage: 0.5 MG, QD
     Dates: start: 20071001, end: 20090218
  3. TENOFOVIR DISOPROXIL FUMARATE. [Suspect]
     Active Substance: TENOFOVIR DISOPROXIL FUMARATE
     Indication: CHRONIC HEPATITIS B
     Dosage: 300 MG, QD
     Dates: start: 20100917, end: 201804
  4. ZEFIX [Suspect]
     Active Substance: LAMIVUDINE
     Indication: CHRONIC HEPATITIS B
     Dosage: UNK
     Dates: start: 200609, end: 200710
  5. ZEFIX [Suspect]
     Active Substance: LAMIVUDINE
     Dosage: 100 MG, QD
     Dates: start: 201804, end: 20210302
  6. HEPSERA [Suspect]
     Active Substance: ADEFOVIR DIPIVOXIL
     Indication: CHRONIC HEPATITIS B
     Dosage: UNK
  7. ENTECAVIR. [Suspect]
     Active Substance: ENTECAVIR
     Dosage: 0.5 MG, QD
     Dates: start: 201005, end: 201804

REACTIONS (6)
  - Genotype drug resistance test positive [Unknown]
  - Drug ineffective [Unknown]
  - Viral load increased [Unknown]
  - Hepatitis B DNA increased [Not Recovered/Not Resolved]
  - Drug resistance [Not Recovered/Not Resolved]
  - Pathogen resistance [Not Recovered/Not Resolved]

NARRATIVE: CASE EVENT DATE: 201304
